FAERS Safety Report 13637602 (Version 2)
Quarter: 2017Q2

REPORT INFORMATION
  Report Type: Spontaneous
  Country: PE (occurrence: PE)
  Receive Date: 20170609
  Receipt Date: 20170621
  Transmission Date: 20170830
  Serious: Yes (Other)
  Sender: FDA-Public Use
  Company Number: PE-PFIZER INC-2017249217

PATIENT
  Age: 81 Year
  Sex: Female

DRUGS (4)
  1. ATENOLOL. [Concomitant]
     Active Substance: ATENOLOL
     Indication: HYPERTENSION
     Dosage: 0.5 DF, UNK
  2. AMLODIPINE [Concomitant]
     Active Substance: AMLODIPINE BESYLATE
     Indication: HYPERTENSION
     Dosage: 0.25 DF(A QUARTER OF TABLET), UNK
  3. XALATAN [Suspect]
     Active Substance: LATANOPROST
     Indication: GLAUCOMA
     Dosage: 1 GTT (ON EACH EYE), DAILY
     Route: 047
  4. ISOSORBIDE. [Concomitant]
     Active Substance: ISOSORBIDE
     Dosage: 0.5 DF(A HALF TABLET OF 5MG), 3X/WEEK(MONDAY, WEDNESDAY AND FRIDAY)

REACTIONS (3)
  - Blood triglycerides increased [Recovered/Resolved]
  - Gait disturbance [Unknown]
  - Blindness [Unknown]
